FAERS Safety Report 16979538 (Version 1)
Quarter: 2019Q4

REPORT INFORMATION
  Report Type: Spontaneous
  Country: US (occurrence: US)
  Receive Date: 20191031
  Receipt Date: 20191031
  Transmission Date: 20200122
  Serious: No
  Sender: FDA-Public Use
  Company Number: US-GLAXOSMITHKLINE-US2019AMR192283

PATIENT

DRUGS (1)
  1. BENLYSTA [Suspect]
     Active Substance: BELIMUMAB
     Indication: PRODUCT USED FOR UNKNOWN INDICATION
     Dosage: UNK
     Route: 065

REACTIONS (7)
  - Lethargy [Unknown]
  - Feeling abnormal [Unknown]
  - Fatigue [Unknown]
  - Headache [Unknown]
  - Dry mouth [Unknown]
  - Dysgeusia [Unknown]
  - Drug ineffective [Unknown]
